FAERS Safety Report 26037868 (Version 1)
Quarter: 2025Q4

REPORT INFORMATION
  Report Type: Spontaneous
  Country: US (occurrence: US)
  Receive Date: 20251112
  Receipt Date: 20251112
  Transmission Date: 20260117
  Serious: No
  Sender: BRACCO
  Company Number: US-BRACCO-2025US04174

PATIENT
  Age: 42 Year
  Sex: Male

DRUGS (14)
  1. LUMASON [Suspect]
     Active Substance: SULFUR HEXAFLUORIDE
     Indication: Echocardiogram
     Dosage: 3 ML, SINGLE
     Route: 042
     Dates: start: 20250221, end: 20250221
  2. LUMASON [Suspect]
     Active Substance: SULFUR HEXAFLUORIDE
     Indication: Echocardiogram
     Dosage: 3 ML, SINGLE
     Route: 042
     Dates: start: 20250221, end: 20250221
  3. LUMASON [Suspect]
     Active Substance: SULFUR HEXAFLUORIDE
     Indication: Echocardiogram
     Dosage: 3 ML, SINGLE
     Route: 042
     Dates: start: 20250221, end: 20250221
  4. ALDACTONE [Concomitant]
     Active Substance: SPIRONOLACTONE
     Dosage: 12.5 MG, QD
     Route: 048
  5. BENZONATATE [Concomitant]
     Active Substance: BENZONATATE
     Dosage: 200 MG, TID/PRN
     Route: 048
  6. BRILINTA [Concomitant]
     Active Substance: TICAGRELOR
     Dosage: 90 MG, BID
     Route: 048
  7. ECOTRIN [Concomitant]
     Active Substance: ASPIRIN
     Dosage: 81 MG, QD
     Route: 048
  8. ENTRESTO [Concomitant]
     Active Substance: SACUBITRIL\VALSARTAN
     Dosage: 1 TOTAL, BID
     Route: 048
  9. FARXIGA [Concomitant]
     Active Substance: DAPAGLIFLOZIN PROPANEDIOL
     Dosage: 5 MG, QD
     Route: 048
  10. LIPITOR [Concomitant]
     Active Substance: ATORVASTATIN CALCIUM
     Dosage: 40 MG, QD
     Route: 048
  11. MOUNJARO [Concomitant]
     Active Substance: TIRZEPATIDE
     Dosage: 5 MG
     Route: 058
  12. OSELTAMIVIR [Concomitant]
     Active Substance: OSELTAMIVIR
     Dosage: 75 MG, BID
     Route: 048
  13. TOPROL XL [Concomitant]
     Active Substance: METOPROLOL SUCCINATE
     Dosage: 50 MG, QD
     Route: 048
  14. TRESIBA [Concomitant]
     Active Substance: INSULIN DEGLUDEC
     Dosage: 24 UNIT
     Route: 058

REACTIONS (3)
  - Paraesthesia [Recovered/Resolved]
  - Hyperhidrosis [Recovered/Resolved]
  - Heart rate increased [Recovered/Resolved]

NARRATIVE: CASE EVENT DATE: 20250221
